FAERS Safety Report 11926680 (Version 1)
Quarter: 2016Q1

REPORT INFORMATION
  Report Type: Spontaneous
  Country: US (occurrence: None)
  Receive Date: 20160115
  Receipt Date: 20160115
  Transmission Date: 20160526
  Serious: Yes (Hospitalization)
  Sender: FDA-Public Use
  Company Number: None

PATIENT
  Age: 67 Year
  Sex: Male
  Weight: 107.7 kg

DRUGS (1)
  1. SUCCINYLCHOLINE [Suspect]
     Active Substance: SUCCINYLCHOLINE
     Indication: NEUROMUSCULAR BLOCKADE
     Dates: start: 20151022, end: 20151022

REACTIONS (4)
  - Paralysis [None]
  - Chest pain [None]
  - Apnoea [None]
  - Asthenia [None]

NARRATIVE: CASE EVENT DATE: 20151022
